FAERS Safety Report 9634430 (Version 2)
Quarter: 2013Q4

REPORT INFORMATION
  Report Type: Spontaneous
  Country: US (occurrence: US)
  Receive Date: 20131021
  Receipt Date: 20131021
  Transmission Date: 20140711
  Serious: No
  Sender: FDA-Public Use
  Company Number: US-PURDUE-USA-2013-0100586

PATIENT
  Age: 67 Year
  Sex: Female

DRUGS (2)
  1. BUTRANS [Suspect]
     Indication: PAIN
     Dosage: 5 MCG/HR, UNK
     Route: 062
     Dates: start: 20130314, end: 20130410
  2. BUTRANS [Suspect]
     Dosage: 10 MCG/HR, UNK
     Route: 062

REACTIONS (4)
  - Limb injury [Unknown]
  - Application site pruritus [Not Recovered/Not Resolved]
  - Application site erythema [Unknown]
  - Pain in extremity [Unknown]
